FAERS Safety Report 4536925-6 (Version None)
Quarter: 2004Q4

REPORT INFORMATION
  Report Type: 
  Country: None (occurrence: None)
  Receive Date: 20041220
  Receipt Date: 20041209
  Transmission Date: 20050328
  Serious: Yes (Hospitalization)
  Sender: FDA-Public Use
  Company Number: 2004107114

PATIENT
  Age: 53 Year
  Sex: Male
  Weight: 111.1313 kg

DRUGS (2)
  1. SUDAFED (PSEUODEPHEDRINE) [Suspect]
     Indication: BRONCHITIS
     Dosage: PRN, ORAL
     Route: 048
  2. CLARITHROMYCIN (CLARYTHROMYCIN) [Concomitant]

REACTIONS (2)
  - NEOPLASM MALIGNANT [None]
  - THROAT CANCER [None]
